FAERS Safety Report 10873549 (Version 2)
Quarter: 2015Q3

REPORT INFORMATION
  Report Type: Spontaneous
  Country: US (occurrence: US)
  Receive Date: 20150227
  Receipt Date: 20150811
  Transmission Date: 20151125
  Serious: Yes (Hospitalization, Congenital Anomaly, Other)
  Sender: FDA-Public Use
  Company Number: US-APOTEX-2015AP006988

PATIENT
  Sex: Female

DRUGS (1)
  1. PAXIL CR [Suspect]
     Active Substance: PAROXETINE HYDROCHLORIDE
     Indication: DEPRESSION
     Dosage: UNK
     Route: 064

REACTIONS (11)
  - Feeding disorder of infancy or early childhood [Unknown]
  - Foetal exposure during pregnancy [Unknown]
  - Large for dates baby [Unknown]
  - Noonan syndrome [Unknown]
  - Pulmonary valve stenosis congenital [Unknown]
  - Congenital mitral valve incompetence [Unknown]
  - Respiratory distress [Unknown]
  - Pneumonia aspiration [Unknown]
  - Eyelid ptosis congenital [Unknown]
  - Atrial septal defect [Unknown]
  - Hypotension [Unknown]
